FAERS Safety Report 5623494-2 (Version None)
Quarter: 2008Q1

REPORT INFORMATION
  Report Type: 
  Country: None (occurrence: None)
  Receive Date: 20080129
  Receipt Date: 20080118
  Transmission Date: 20080703
  Serious: Yes (Hospitalization)
  Sender: FDA-Public Use
  Company Number: WAES 0708USA00091

PATIENT
  Sex: Female

DRUGS (3)
  1. INVANZ [Suspect]
     Indication: PNEUMONIA
     Dates: start: 20070724
  2. AVELOX [Concomitant]
  3. LEVAQUIN [Concomitant]

REACTIONS (1)
  - HEPATIC ENZYME INCREASED [None]
